FAERS Safety Report 7617364-8 (Version None)
Quarter: 2011Q3

REPORT INFORMATION
  Report Type: 
  Country: None (occurrence: None)
  Receive Date: 20110718
  Receipt Date: 20110714
  Transmission Date: 20111222
  Serious: Yes (Hospitalization)
  Sender: FDA-Public Use
  Company Number: NL-BRISTOL-MYERS SQUIBB COMPANY-15829740

PATIENT
  Age: 59 Year
  Sex: Male

DRUGS (2)
  1. CISPLATIN [Suspect]
     Indication: NON-SMALL CELL LUNG CANCER
     Dosage: 5D/7D WEEK LAST TRIAL TREATMENT 31MAY2011
     Route: 042
     Dates: start: 20110510
  2. CETUXIMAB [Suspect]
     Indication: NON-SMALL CELL LUNG CANCER
     Dosage: LAST TRIAL TREATMENT 31MAY2011
     Route: 042
     Dates: start: 20110503, end: 20110531

REACTIONS (3)
  - MUCOSAL INFLAMMATION [None]
  - HYPOMAGNESAEMIA [None]
  - HYPOCALCAEMIA [None]
